FAERS Safety Report 8804910 (Version 3)
Quarter: 2015Q1

REPORT INFORMATION
  Report Type: Report from Study
  Country: US (occurrence: US)
  Receive Date: 20120924
  Receipt Date: 20150226
  Transmission Date: 20150721
  Serious: Yes (Death)
  Sender: FDA-Public Use
  Company Number: US-ROCHE-1103513

PATIENT
  Age: 34 Year
  Sex: Female

DRUGS (17)
  1. AREDIA [Concomitant]
     Active Substance: PAMIDRONATE DISODIUM
     Route: 042
  2. NEUPOGEN [Concomitant]
     Active Substance: FILGRASTIM
     Route: 065
  3. PAMIDRONATE [Concomitant]
     Active Substance: PAMIDRONATE DISODIUM
     Route: 042
     Dates: start: 20090814
  4. ACETAMINOPHEN. [Concomitant]
     Active Substance: ACETAMINOPHEN
     Route: 065
  5. PSYLLIUM [Concomitant]
     Active Substance: PLANTAGO SEED
     Dosage: 1 TBSP DAILY
     Route: 065
  6. LORAZEPAM. [Concomitant]
     Active Substance: LORAZEPAM
  7. ALOXI [Concomitant]
     Active Substance: PALONOSETRON HYDROCHLORIDE
     Route: 042
  8. L-GLUTAMINE [Concomitant]
     Route: 065
  9. LUPRON [Concomitant]
     Active Substance: LEUPROLIDE ACETATE
     Route: 065
  10. PEPCID [Concomitant]
     Active Substance: FAMOTIDINE
  11. ZANTAC [Concomitant]
     Active Substance: RANITIDINE HYDROCHLORIDE
     Route: 048
  12. XELODA [Suspect]
     Active Substance: CAPECITABINE
     Indication: BREAST CANCER FEMALE
     Route: 048
     Dates: start: 20090909
  13. IXEMPRA [Concomitant]
     Active Substance: IXABEPILONE
     Route: 065
     Dates: start: 20090930
  14. IXEMPRA [Concomitant]
     Active Substance: IXABEPILONE
     Route: 042
  15. DECADRON [Concomitant]
     Active Substance: DEXAMETHASONE
     Route: 042
  16. AVASTIN [Suspect]
     Active Substance: BEVACIZUMAB
     Indication: BREAST CANCER FEMALE
     Route: 042
     Dates: start: 20090909
  17. BENADRYL [Concomitant]
     Active Substance: DIPHENHYDRAMINE HYDROCHLORIDE
     Route: 048

REACTIONS (13)
  - Lethargy [Unknown]
  - Hot flush [Unknown]
  - Eczema [Unknown]
  - Paranasal sinus discomfort [Unknown]
  - Dry skin [Unknown]
  - Nausea [Unknown]
  - Death [Fatal]
  - Weight decreased [Unknown]
  - Hypoaesthesia [Unknown]
  - Butterfly rash [Unknown]
  - Erythema [Unknown]
  - Pruritus [Unknown]
  - Disease progression [Unknown]

NARRATIVE: CASE EVENT DATE: 20100825
